FAERS Safety Report 9804824 (Version 3)
Quarter: 2014Q2

REPORT INFORMATION
  Report Type: Spontaneous
  Country: PL (occurrence: PL)
  Receive Date: 20140108
  Receipt Date: 20140416
  Transmission Date: 20141212
  Serious: Yes (Hospitalization, Other)
  Sender: FDA-Public Use
  Company Number: PL-BAXTER-2013BAX053810

PATIENT
  Age: 61 Year
  Sex: Male
  Weight: 86 kg

DRUGS (1)
  1. KIOVIG 100 MG/ML SOLUTION FOR INFUSION [Suspect]
     Indication: PRODUCT USED FOR UNKNOWN INDICATION
     Route: 042
     Dates: start: 20131230, end: 20131230

REACTIONS (8)
  - Chills [Unknown]
  - Blood pressure immeasurable [Unknown]
  - Skin discolouration [Unknown]
  - Pulse absent [Unknown]
  - Pallor [Unknown]
  - Shock [Unknown]
  - Hypotension [Unknown]
  - Chills [Unknown]
